FAERS Safety Report 14424309 (Version 2)
Quarter: 2018Q1

REPORT INFORMATION
  Report Type: Spontaneous
  Country: FR (occurrence: FR)
  Receive Date: 20180123
  Receipt Date: 20180228
  Transmission Date: 20180509
  Serious: Yes (Life-Threatening, Hospitalization)
  Sender: FDA-Public Use
  Company Number: FR-JNJFOC-20180114036

PATIENT
  Age: 71 Year
  Sex: Male
  Weight: 96 kg

DRUGS (5)
  1. POLARAMINE [Concomitant]
     Active Substance: DEXCHLORPHENIRAMINE MALEATE
     Indication: PREMEDICATION
     Route: 065
     Dates: start: 20180105
  2. DARZALEX [Suspect]
     Active Substance: DARATUMUMAB
     Indication: PLASMABLASTIC LYMPHOMA
     Route: 042
     Dates: start: 20180105, end: 20180105
  3. PARACETAMOL [Concomitant]
     Active Substance: ACETAMINOPHEN
     Indication: PREMEDICATION
     Route: 065
     Dates: start: 20180105
  4. SINGULAIR [Concomitant]
     Active Substance: MONTELUKAST SODIUM
     Indication: PREMEDICATION
     Route: 065
     Dates: start: 20180105
  5. DEXAMETHASONE. [Concomitant]
     Active Substance: DEXAMETHASONE
     Indication: PREMEDICATION
     Route: 065
     Dates: start: 20180105

REACTIONS (9)
  - Hypoxia [Unknown]
  - Off label use [Not Recovered/Not Resolved]
  - Bronchospasm [Recovered/Resolved]
  - Dyspnoea [Unknown]
  - Infusion related reaction [Unknown]
  - Hypercapnic coma [Recovered/Resolved]
  - Respiratory distress [Recovered/Resolved]
  - Nervous system disorder [Unknown]
  - Product use in unapproved indication [Not Recovered/Not Resolved]

NARRATIVE: CASE EVENT DATE: 20180105
